FAERS Safety Report 15820370 (Version 1)
Quarter: 2019Q1

REPORT INFORMATION
  Report Type: Report from Study
  Country: CN (occurrence: CN)
  Receive Date: 20190114
  Receipt Date: 20190114
  Transmission Date: 20190417
  Serious: Yes (Hospitalization)
  Sender: FDA-Public Use
  Company Number: CN-ROCHE-1992881

PATIENT
  Sex: Female
  Weight: 40 kg

DRUGS (1)
  1. AVASTIN [Suspect]
     Active Substance: BEVACIZUMAB
     Indication: APPENDIX CANCER
     Route: 041
     Dates: start: 20170307

REACTIONS (8)
  - Off label use [Unknown]
  - Dysgeusia [Unknown]
  - Onychomadesis [Unknown]
  - White blood cell count decreased [Unknown]
  - Haematochezia [Unknown]
  - Discomfort [Unknown]
  - Intentional product use issue [Unknown]
  - Appetite disorder [Unknown]
